FAERS Safety Report 9057674 (Version 1)
Quarter: 2013Q1

REPORT INFORMATION
  Report Type: Spontaneous
  Country: EC (occurrence: EC)
  Receive Date: 20130204
  Receipt Date: 20130204
  Transmission Date: 20140127
  Serious: Yes (Death, Hospitalization)
  Sender: FDA-Public Use
  Company Number: EC-PFIZER INC-2013042539

PATIENT
  Age: 38 Year
  Sex: Male

DRUGS (2)
  1. CELEBREX [Suspect]
     Indication: MUSCULOSKELETAL PAIN
     Dosage: 200 MG, 2X/DAY
     Route: 048
  2. ANALGAN [Concomitant]
     Dosage: 1 G, 3X/DAY
     Route: 048

REACTIONS (2)
  - Pneumonia staphylococcal [Fatal]
  - Rash [Unknown]
